FAERS Safety Report 11510935 (Version 1)
Quarter: 2015Q3

REPORT INFORMATION
  Report Type: Spontaneous
  Country: CN (occurrence: CN)
  Receive Date: 20150915
  Receipt Date: 20150915
  Transmission Date: 20151125
  Serious: Yes (Life-Threatening)
  Sender: FDA-Public Use
  Company Number: PHHY2015CN110594

PATIENT
  Age: 72 Year
  Sex: Female
  Weight: 58 kg

DRUGS (7)
  1. IBUPROFEN. [Concomitant]
     Active Substance: IBUPROFEN
     Indication: PROPHYLAXIS
  2. ACLASTA [Suspect]
     Active Substance: ZOLEDRONIC ACID
     Indication: OSTEOPOROSIS POSTMENOPAUSAL
     Dosage: 5 MG PER 100 ML YEARLY
     Route: 042
     Dates: start: 20150911
  3. CALCIUM PLUS VITAMIN D3 [Concomitant]
     Indication: HYPOCALCAEMIA
     Dosage: 1 DF (500MMG CA, 200 IU VITAMIND3) 1 TABLET PER TIME 1-2 TIMES A DAY
     Route: 048
     Dates: start: 20150911, end: 20150912
  4. SODIUM CHLORIDE. [Concomitant]
     Active Substance: SODIUM CHLORIDE
     Indication: DEHYDRATION
     Dosage: 500 ML, ONCE/SINGLE
     Route: 042
     Dates: start: 20150911, end: 20150911
  5. IBUPROFEN. [Concomitant]
     Active Substance: IBUPROFEN
     Indication: MIGRAINE
  6. IBUPROFEN. [Concomitant]
     Active Substance: IBUPROFEN
     Indication: PYREXIA
     Dosage: 300 MG, QID ( 3 TO 4 TIMES A DAY)
     Route: 048
     Dates: start: 20150911, end: 20150912
  7. CALCIUM PLUS VITAMIN D3 [Concomitant]
     Indication: OSTEOPOROSIS

REACTIONS (6)
  - Chest discomfort [Recovered/Resolved]
  - Eating disorder [Unknown]
  - Depressed level of consciousness [Recovered/Resolved]
  - Pyrexia [Recovered/Resolved]
  - Incontinence [Recovered/Resolved]
  - Coma [Recovered/Resolved]

NARRATIVE: CASE EVENT DATE: 20150912
